FAERS Safety Report 7636203-2 (Version None)
Quarter: 2011Q3

REPORT INFORMATION
  Report Type: 
  Country: None (occurrence: None)
  Receive Date: 20110722
  Receipt Date: 20110722
  Transmission Date: 20111222
  Serious: Yes (Other)
  Sender: FDA-Public Use
  Company Number: None

PATIENT
  Sex: Female
  Weight: 105.2345 kg

DRUGS (2)
  1. VANCOMYCIN [Suspect]
     Indication: OSTEOMYELITIS
     Dosage: STARTEDAT 500ML DAILY I.V.; INCREASED TO 1000ML BID I.V.
     Route: 042
     Dates: start: 20101001, end: 20110101
  2. VANCOMYCIN [Suspect]
     Indication: CELLULITIS
     Dosage: STARTEDAT 500ML DAILY I.V.; INCREASED TO 1000ML BID I.V.
     Route: 042
     Dates: start: 20101001, end: 20110101

REACTIONS (5)
  - ARTHRALGIA [None]
  - IMMUNE SYSTEM DISORDER [None]
  - FATIGUE [None]
  - RHEUMATOID ARTHRITIS [None]
  - CHILLS [None]
